FAERS Safety Report 8583174 (Version 2)
Quarter: 2014Q1

REPORT INFORMATION
  Report Type: Spontaneous
  Country: US (occurrence: None)
  Receive Date: 20120323
  Receipt Date: 20130305
  Transmission Date: 20141002
  Serious: Yes (Hospitalization)
  Sender: FDA-Public Use
  Company Number: 163-21880-09040548

PATIENT
  Age: 73 Year
  Sex: Female

DRUGS (13)
  1. REVLIMID [Suspect]
     Indication: PLASMA CELL MYELOMA
     Dosage: 15 MG, DAILY X 21, 7 DAYS OFF, PO
     Route: 048
     Dates: start: 20090314, end: 20090324
  2. METFORMIN [Concomitant]
  3. GLIMEPIRIDE [Concomitant]
  4. NORVASC (AMLODIPINE BESILATE) [Concomitant]
  5. DYAZIDE [Concomitant]
  6. COUMADIN (WARFARIN SODIUM) [Concomitant]
  7. CALCIUM + VITAMIN D (LEKOVIT CA) [Concomitant]
  8. ACTOS (PIOGLITAZONE HYDROCHLORIDE) [Concomitant]
  9. LOPRESSOR (METOPROLOL TARTRATE) [Concomitant]
  10. GLIPIZIDE [Concomitant]
  11. IRON [Concomitant]
  12. ARANESP (DARBEPOETIN ALFA) [Concomitant]
  13. FOSAMAX (ALENDRONATE SODIUM) [Concomitant]

REACTIONS (3)
  - Rash [None]
  - Urticaria [None]
  - Drug eruption [None]
